FAERS Safety Report 23312064 (Version 3)
Quarter: 2023Q4

REPORT INFORMATION
  Report Type: Spontaneous
  Country: NL (occurrence: NL)
  Receive Date: 20231219
  Receipt Date: 20231225
  Transmission Date: 20240109
  Serious: Yes (Death)
  Sender: FDA-Public Use
  Company Number: NL-AstraZeneca-2023A278197

PATIENT

DRUGS (2)
  1. GOSERELIN [Suspect]
     Active Substance: GOSERELIN
     Indication: Targeted cancer therapy
     Dosage: 10.8 MG, EVERY THREE MONTHS
     Route: 058
     Dates: start: 20200707
  2. ZOLADEX [Suspect]
     Active Substance: GOSERELIN ACETATE
     Indication: Targeted cancer therapy
     Dosage: UNK
     Route: 065

REACTIONS (1)
  - Death [Fatal]

NARRATIVE: CASE EVENT DATE: 20231112
